FAERS Safety Report 4314972-7 (Version None)
Quarter: 2004Q1

REPORT INFORMATION
  Report Type: 
  Country: None (occurrence: None)
  Receive Date: 20040310
  Receipt Date: 20040310
  Transmission Date: 20041129
  Serious: Yes (Other)
  Sender: FDA-Public Use
  Company Number: None

PATIENT
  Age: 64 Year
  Sex: Female
  Weight: 136.0791 kg

DRUGS (2)
  1. FUROSEMIDE [Suspect]
     Indication: OEDEMA
     Dosage: DAILY
  2. ZAROXOLYN [Suspect]
     Indication: OEDEMA
     Dosage: DAILY

REACTIONS (3)
  - DRUG INEFFECTIVE [None]
  - OEDEMA [None]
  - PHARMACEUTICAL PRODUCT COMPLAINT [None]
